FAERS Safety Report 8239565-0 (Version None)
Quarter: 2012Q1

REPORT INFORMATION
  Report Type: 
  Country: None (occurrence: None)
  Receive Date: 20120328
  Receipt Date: 20120321
  Transmission Date: 20120608
  Serious: Yes (Other)
  Sender: FDA-Public Use
  Company Number: ES-JNJFOC-20111201038

PATIENT
  Sex: Male
  Weight: 75 kg

DRUGS (6)
  1. ALPRAZOLAM [Concomitant]
     Indication: ILL-DEFINED DISORDER
  2. HUMIRA [Suspect]
     Indication: PSORIASIS
     Route: 065
     Dates: start: 20091007, end: 20100325
  3. STELARA [Suspect]
     Route: 058
     Dates: start: 20100427, end: 20100729
  4. VENLAFAXINE HCL [Concomitant]
     Indication: ILL-DEFINED DISORDER
  5. STELARA [Suspect]
     Route: 058
     Dates: start: 20110110, end: 20110630
  6. STELARA [Suspect]
     Indication: PSORIASIS
     Route: 058
     Dates: start: 20110803, end: 20111103

REACTIONS (3)
  - DRUG INEFFECTIVE [None]
  - LARYNGEAL CANCER [None]
  - PSORIASIS [None]
